FAERS Safety Report 22015760 (Version 3)
Quarter: 2024Q1

REPORT INFORMATION
  Report Type: Spontaneous
  Country: US (occurrence: US)
  Receive Date: 20230221
  Receipt Date: 20240112
  Transmission Date: 20240410
  Serious: Yes (Other)
  Sender: FDA-Public Use
  Company Number: US-SA-SAC20230221000171

PATIENT
  Age: 35 Year
  Sex: Male

DRUGS (2)
  1. ALPROLIX [Suspect]
     Active Substance: EFTRENONACOG ALFA
     Indication: Factor IX deficiency
     Dosage: 4000 UNITS (3600-4400) SLOW IV PUSH TWICE WEEKLY WHILE WORKING. INFUSE 4000 UNITS (3600-4400) SLOW I
     Route: 042
     Dates: start: 20220131
  2. ALPROLIX [Suspect]
     Active Substance: EFTRENONACOG ALFA
     Indication: Factor IX deficiency
     Dosage: 4000 UNITS (3600-4400) SLOW IV PUSH TWICE WEEKLY WHILE WORKING. INFUSE 4000 UNITS (3600-4400) SLOW I
     Route: 042
     Dates: start: 20220131

REACTIONS (4)
  - Haemorrhage [Unknown]
  - Haemorrhage [Unknown]
  - Haemorrhage [Unknown]
  - Haemorrhage [Recovered/Resolved]

NARRATIVE: CASE EVENT DATE: 20230205
